FAERS Safety Report 26060180 (Version 1)
Quarter: 2025Q4

REPORT INFORMATION
  Report Type: Spontaneous
  Country: CN (occurrence: CN)
  Receive Date: 20251118
  Receipt Date: 20251118
  Transmission Date: 20260117
  Serious: Yes (Hospitalization)
  Sender: PFIZER
  Company Number: CN-PFIZER INC-PV202500130692

PATIENT
  Age: 11 Day
  Sex: Female
  Weight: 4 kg

DRUGS (5)
  1. CEFOPERAZONE SODIUM\SULBACTAM SODIUM [Suspect]
     Active Substance: CEFOPERAZONE SODIUM\SULBACTAM SODIUM
     Indication: Sepsis neonatal
     Dosage: 0.2 G, 3X/DAY
     Route: 050
     Dates: start: 20251011
  2. MEROPENEM [Suspect]
     Active Substance: MEROPENEM
     Indication: Sepsis neonatal
     Dosage: 0.16 G, 1X/DAY
     Route: 041
     Dates: start: 20251010
  3. MEROPENEM [Suspect]
     Active Substance: MEROPENEM
     Dosage: 0.16 G, 1X/DAY
     Route: 041
     Dates: start: 20251010
  4. MEROPENEM [Suspect]
     Active Substance: MEROPENEM
     Dosage: 0.16 G, 1X/DAY
     Route: 041
     Dates: start: 20251010
  5. VANCOCIN [Concomitant]
     Active Substance: VANCOMYCIN HYDROCHLORIDE
     Indication: Sepsis neonatal
     Dosage: 39 MG, 1X/DAY
     Dates: start: 20251018

REACTIONS (2)
  - Infantile diarrhoea [Recovering/Resolving]
  - Off label use [Unknown]

NARRATIVE: CASE EVENT DATE: 20251010
